FAERS Safety Report 9885653 (Version 1)
Quarter: 2014Q1

REPORT INFORMATION
  Report Type: Spontaneous
  Country: US (occurrence: US)
  Receive Date: 20140210
  Receipt Date: 20140210
  Transmission Date: 20141002
  Serious: No
  Sender: FDA-Public Use
  Company Number: US-PFIZER INC-2014033090

PATIENT
  Age: 54 Year
  Sex: Female
  Weight: 49.89 kg

DRUGS (1)
  1. ATORVASTATIN CALCIUM [Suspect]
     Indication: BLOOD CHOLESTEROL INCREASED
     Dosage: 40 MG, 1X/DAY
     Dates: start: 2012, end: 20140201

REACTIONS (4)
  - Hypersensitivity [Unknown]
  - Rash [Not Recovered/Not Resolved]
  - Pruritus [Recovering/Resolving]
  - Product quality issue [Not Recovered/Not Resolved]
